FAERS Safety Report 11862505 (Version 2)
Quarter: 2016Q1

REPORT INFORMATION
  Report Type: Report from Study
  Country: JP (occurrence: JP)
  Receive Date: 20151223
  Receipt Date: 20160125
  Transmission Date: 20160526
  Serious: Yes (Hospitalization)
  Sender: FDA-Public Use
  Company Number: JP-ROCHE-1682208

PATIENT
  Age: 40 Year
  Sex: Female
  Weight: 61 kg

DRUGS (18)
  1. WYPAX [Concomitant]
     Active Substance: LORAZEPAM
     Dosage: THE FRACTIONATION DOSE FREQUENCY IS UNCERTAIN. ?AMOUNT OF SINGLE-DOSE: 1 (UNIT UNCERTAINTY)
     Route: 048
  2. DOXORUBICIN HYDROCHLORIDE. [Suspect]
     Active Substance: DOXORUBICIN HYDROCHLORIDE
     Indication: MALIGNANT MELANOMA
     Route: 041
     Dates: start: 20150528, end: 20150529
  3. REBAMIPIDE [Concomitant]
     Active Substance: REBAMIPIDE
     Indication: PROPHYLAXIS
     Dosage: THE FRACTIONATION DOSE FREQUENCY IS UNCERTAIN.
     Route: 048
  4. ASPARA POTASSIUM [Concomitant]
     Active Substance: POTASSIUM ASPARTATE
     Indication: MALIGNANT MELANOMA
     Dosage: THE FRACTIONATION DOSE FREQUENCY IS UNCERTAIN. ?AMOUNT OF SINGLE-DOSE: 900 (UNIT UNCERTAINTY)
     Route: 048
     Dates: start: 20151209
  5. RHYTHMY [Concomitant]
     Active Substance: RILMAZAFONE HYDROCHLORIDE
     Dosage: THE FRACTIONATION DOSE FREQUENCY IS UNCERTAIN.
     Route: 048
  6. IFOMIDE [Suspect]
     Active Substance: IFOSFAMIDE
     Indication: MALIGNANT MELANOMA
     Route: 041
     Dates: start: 20150428, end: 20150502
  7. FUROSEMIDE. [Concomitant]
     Active Substance: FUROSEMIDE
     Indication: PROPHYLAXIS
     Dosage: THE FRACTIONATION DOSE FREQUENCY IS UNCERTAIN.
     Route: 048
  8. HUSTAZOL (CLOPERASTINE) [Concomitant]
     Indication: MALIGNANT MELANOMA
     Dosage: THE FRACTIONATION DOSE FREQUENCY IS UNCERTAIN.
     Route: 048
     Dates: start: 20151207
  9. VEMURAFENIB [Suspect]
     Active Substance: VEMURAFENIB
     Indication: MALIGNANT MELANOMA
     Route: 048
     Dates: start: 20151202, end: 20151207
  10. FUROSEMIDE. [Concomitant]
     Active Substance: FUROSEMIDE
     Indication: MALIGNANT MELANOMA
     Dosage: THE FRACTIONATION DOSE FREQUENCY IS UNCERTAIN.
     Route: 048
     Dates: start: 20151207
  11. DOXORUBICIN HYDROCHLORIDE. [Suspect]
     Active Substance: DOXORUBICIN HYDROCHLORIDE
     Indication: MALIGNANT MELANOMA
     Dosage: DOSAGE IS UNCERTAIN.
     Route: 041
     Dates: end: 20150601
  12. DOXORUBICIN HYDROCHLORIDE. [Suspect]
     Active Substance: DOXORUBICIN HYDROCHLORIDE
     Indication: MALIGNANT MELANOMA
     Route: 041
     Dates: start: 20150428, end: 20150429
  13. IFOMIDE [Suspect]
     Active Substance: IFOSFAMIDE
     Indication: MALIGNANT MELANOMA
     Route: 041
     Dates: start: 20150528, end: 20150601
  14. LOXOPROFEN [Concomitant]
     Active Substance: LOXOPROFEN
     Indication: MALIGNANT MELANOMA
     Dosage: THE FRACTIONATION DOSE FREQUENCY IS UNCERTAIN.
     Route: 048
  15. DOXORUBICIN HYDROCHLORIDE. [Suspect]
     Active Substance: DOXORUBICIN HYDROCHLORIDE
     Indication: MALIGNANT MELANOMA
     Dosage: DOSAGE IS UNCERTAIN.
     Route: 041
     Dates: end: 201508
  16. IFOMIDE [Suspect]
     Active Substance: IFOSFAMIDE
     Indication: MALIGNANT MELANOMA
     Dosage: DOSAGE IS UNCERTAIN.
     Route: 041
     Dates: end: 201508
  17. TRAMAL [Concomitant]
     Active Substance: TRAMADOL
     Indication: MALIGNANT MELANOMA
     Dosage: THE FRACTIONATION DOSE FREQUENCY IS UNCERTAIN.
     Route: 048
  18. INDOMETACIN [Concomitant]
     Active Substance: INDOMETHACIN
     Indication: MALIGNANT MELANOMA
     Dosage: PROPERLY?THE FRACTIONATION DOSE FREQUENCY IS UNCERTAIN.
     Route: 061

REACTIONS (2)
  - Cardiac failure [Recovering/Resolving]
  - Headache [Recovering/Resolving]

NARRATIVE: CASE EVENT DATE: 20151203
